FAERS Safety Report 12453703 (Version 2)
Quarter: 2016Q4

REPORT INFORMATION
  Report Type: Spontaneous
  Country: US (occurrence: US)
  Receive Date: 20160609
  Receipt Date: 20161019
  Transmission Date: 20170207
  Serious: No
  Sender: FDA-Public Use
  Company Number: US-GLAXOSMITHKLINE-US2016GSK083033

PATIENT
  Sex: Male

DRUGS (1)
  1. OMEGA-3-ACID ETHYL ESTERS CAPSULE [Suspect]
     Active Substance: OMEGA-3-ACID ETHYL ESTERS
     Indication: PRODUCT USED FOR UNKNOWN INDICATION
     Dosage: 1 G, UNK

REACTIONS (2)
  - Malaise [Unknown]
  - Product odour abnormal [Unknown]
